FAERS Safety Report 24686270 (Version 1)
Quarter: 2024Q4

REPORT INFORMATION
  Report Type: Report from Study
  Country: US (occurrence: US)
  Receive Date: 20241202
  Receipt Date: 20241202
  Transmission Date: 20250114
  Serious: Yes (Other)
  Sender: PFIZER
  Company Number: US-PFIZER INC-PV202400100392

PATIENT
  Age: 64 Year
  Sex: Female

DRUGS (6)
  1. IBRANCE [Suspect]
     Active Substance: PALBOCICLIB
     Indication: Breast cancer female
     Dosage: 75MG, 1 TABLET PER ORAL DAILY ON DAYS 1 TO 21 OF A 28-DAY CYCLE
     Route: 048
     Dates: start: 20240722
  2. IBRANCE [Suspect]
     Active Substance: PALBOCICLIB
     Dosage: 100 MG, CYCLIC (DAYS 1 TO 21 OF A 28 DAY CYCLE)
     Route: 048
     Dates: start: 20240722
  3. IBRANCE [Suspect]
     Active Substance: PALBOCICLIB
     Dosage: 75MG, 1 TABLET PER ORAL DAILY ON DAYS 1 TO 21 OF A 28-DAY CYCLE
     Route: 048
     Dates: end: 2024
  4. IBRANCE [Suspect]
     Active Substance: PALBOCICLIB
     Dosage: 100 MG PER ORAL DAILY ON DAYS 1 TO 21 OF A 28 DAY CYCLE
     Route: 048
     Dates: start: 20241014
  5. FULVESTRANT [Suspect]
     Active Substance: FULVESTRANT
     Dosage: UNK
     Dates: end: 2024
  6. VERZENIO [Concomitant]
     Active Substance: ABEMACICLIB
     Dosage: UNK

REACTIONS (4)
  - Urticaria [Unknown]
  - Hypotension [Unknown]
  - Aphonia [Unknown]
  - Feeling hot [Recovering/Resolving]

NARRATIVE: CASE EVENT DATE: 20240101
